FAERS Safety Report 10621527 (Version 1)
Quarter: 2014Q4

REPORT INFORMATION
  Report Type: Spontaneous
  Country: US (occurrence: None)
  Receive Date: 20141121
  Receipt Date: 20141121
  Transmission Date: 20150529
  Serious: Yes (Hospitalization)
  Sender: FDA-Public Use
  Company Number: A-NJ2014-98336

PATIENT
  Age: 53 Year
  Sex: Female

DRUGS (8)
  1. DIGOXIN. [Concomitant]
     Active Substance: DIGOXIN
  2. MAGNESIUM (MAGNESIUM SULFATE) [Concomitant]
  3. PREZISTA (DARUNAVIR ETHANOLATE) [Concomitant]
  4. VENTAVIS [Suspect]
     Active Substance: ILOPROST
     Indication: PULMONARY ARTERIAL HYPERTENSION
     Dosage: 5MCG, 6-9TIMES A DAY, RESPIRATORY
     Dates: start: 20131030
  5. LISINOPRIL. [Concomitant]
     Active Substance: LISINOPRIL
  6. LETAIRIS [Concomitant]
     Active Substance: AMBRISENTAN
  7. TORSEMIDE. [Concomitant]
     Active Substance: TORSEMIDE
  8. WARFARIN [Concomitant]
     Active Substance: WARFARIN

REACTIONS (5)
  - Chest pain [None]
  - Oedema peripheral [None]
  - Oedema [None]
  - Pneumonia [None]
  - Dyspnoea [None]

NARRATIVE: CASE EVENT DATE: 20140414
